FAERS Safety Report 4298730-8 (Version None)
Quarter: 2004Q1

REPORT INFORMATION
  Report Type: 
  Country: None (occurrence: None)
  Receive Date: 20040121
  Receipt Date: 20031021
  Transmission Date: 20041129
  Serious: No
  Sender: FDA-Public Use
  Company Number: USA031050459

PATIENT
  Age: 6 Year
  Sex: Male
  Weight: 24 kg

DRUGS (1)
  1. STRATTERA [Suspect]
     Indication: ATTENTION DEFICIT/HYPERACTIVITY DISORDER
     Dosage: 40 MG/1 IN THE MORNING
     Dates: start: 20030701

REACTIONS (2)
  - DRUG EFFECT DECREASED [None]
  - PRESCRIBED OVERDOSE [None]
